FAERS Safety Report 7724328-2 (Version None)
Quarter: 2011Q3

REPORT INFORMATION
  Report Type: 
  Country: None (occurrence: None)
  Receive Date: 20110901
  Receipt Date: 20110823
  Transmission Date: 20111222
  Serious: Yes (Other)
  Sender: FDA-Public Use
  Company Number: HR-ASTRAZENECA-2011SE50677

PATIENT
  Age: 58 Year
  Sex: Female
  Weight: 63 kg

DRUGS (6)
  1. ACTIVILLE [Concomitant]
     Route: 048
     Dates: start: 20010101
  2. APIDRA SOLOSTAR [Concomitant]
     Indication: DIABETES MELLITUS
     Dates: start: 20040101
  3. CRESTOR [Suspect]
     Indication: HYPERLIPIDAEMIA
     Route: 048
     Dates: start: 20110201, end: 20110201
  4. LACIPIL [Concomitant]
     Indication: HYPERTENSION
     Route: 048
     Dates: start: 20090101
  5. DIOVAN HCT [Concomitant]
     Indication: HYPERTENSION
     Dosage: 12.5/160 MG DAILY
     Route: 048
     Dates: start: 20090101
  6. LANTUS [Concomitant]
     Indication: DIABETES MELLITUS
     Dates: start: 20040101

REACTIONS (5)
  - LOSS OF CONSCIOUSNESS [None]
  - PARAESTHESIA [None]
  - MALAISE [None]
  - HYPOAESTHESIA ORAL [None]
  - SWOLLEN TONGUE [None]
